FAERS Safety Report 8555139-6 (Version None)
Quarter: 2012Q3

REPORT INFORMATION
  Report Type: 
  Country: None (occurrence: None)
  Receive Date: 20120731
  Receipt Date: 20120724
  Transmission Date: 20120928
  Serious: Yes (Other)
  Sender: FDA-Public Use
  Company Number: US-PFIZER INC-2012173661

PATIENT
  Sex: Male

DRUGS (2)
  1. GABAPENTIN [Suspect]
     Indication: NEUROPATHY PERIPHERAL
     Dosage: 300 MG, 3X/DAY
  2. LYRICA [Suspect]
     Indication: NEUROPATHY PERIPHERAL
     Dosage: 100 MG, 3X/DAY
     Dates: start: 20120601

REACTIONS (11)
  - CONVULSION [None]
  - HYPOAESTHESIA [None]
  - PAIN [None]
  - BACK PAIN [None]
  - FEELING ABNORMAL [None]
  - CONTUSION [None]
  - THINKING ABNORMAL [None]
  - NEUROPATHY PERIPHERAL [None]
  - DIZZINESS [None]
  - PARAESTHESIA [None]
  - CONFUSIONAL STATE [None]
